FAERS Safety Report 21643295 (Version 2)
Quarter: 2023Q4

REPORT INFORMATION
  Report Type: Spontaneous
  Country: TN (occurrence: TN)
  Receive Date: 20221125
  Receipt Date: 20231030
  Transmission Date: 20240110
  Serious: Yes (Other)
  Sender: FDA-Public Use
  Company Number: TN-NATCOUSA-2022-NATCOUSA-000095

PATIENT
  Age: 54 Year
  Sex: Female

DRUGS (2)
  1. IMATINIB MESYLATE [Suspect]
     Active Substance: IMATINIB MESYLATE
     Indication: Chronic myeloid leukaemia
     Dates: start: 2012
  2. IMATINIB MESYLATE [Suspect]
     Active Substance: IMATINIB MESYLATE
     Indication: Chronic myeloid leukaemia
     Dates: start: 201909

REACTIONS (2)
  - B-cell lymphoma [Unknown]
  - Chronic gastritis [Unknown]
